FAERS Safety Report 5523429-7 (Version None)
Quarter: 2007Q4

REPORT INFORMATION
  Report Type: 
  Country: None (occurrence: None)
  Receive Date: 20071116
  Receipt Date: 20071109
  Transmission Date: 20080405
  Serious: Yes (Death, Life-Threatening, Hospitalization)
  Sender: FDA-Public Use
  Company Number: OSCN-GE-0703S-0124

PATIENT
  Age: 72 Year
  Sex: Male

DRUGS (5)
  1. OMNISCAN [Suspect]
     Indication: PERIPHERAL ARTERIAL OCCLUSIVE DISEASE
     Dosage: 125 ML, SINGLE DOSE, I.V. ; 150 ML, SINGLE DOSE, I.V. ; 90 ML, SINGLE DOSE, I.V.
     Route: 042
     Dates: start: 20060123, end: 20060123
  2. OMNISCAN [Suspect]
     Indication: PERIPHERAL ARTERIAL OCCLUSIVE DISEASE
     Dosage: 125 ML, SINGLE DOSE, I.V. ; 150 ML, SINGLE DOSE, I.V. ; 90 ML, SINGLE DOSE, I.V.
     Route: 042
     Dates: start: 20060224, end: 20060224
  3. OMNISCAN [Suspect]
     Indication: PERIPHERAL ARTERIAL OCCLUSIVE DISEASE
     Dosage: 125 ML, SINGLE DOSE, I.V. ; 150 ML, SINGLE DOSE, I.V. ; 90 ML, SINGLE DOSE, I.V.
     Route: 042
     Dates: start: 20060228, end: 20060228
  4. ERYTHROPOETIN [Concomitant]
  5. WARFARIN SODIUM [Concomitant]

REACTIONS (17)
  - ANAEMIA [None]
  - ANOREXIA [None]
  - ANTITHROMBIN III DECREASED [None]
  - APATHY [None]
  - BLOOD GLUCOSE INCREASED [None]
  - CARDIAC FAILURE [None]
  - CARDIAC MURMUR [None]
  - CONFUSIONAL STATE [None]
  - GENERAL PHYSICAL HEALTH DETERIORATION [None]
  - LEUKOPENIA [None]
  - NEPHROGENIC SYSTEMIC FIBROSIS [None]
  - NO THERAPEUTIC RESPONSE [None]
  - PCO2 DECREASED [None]
  - PERIPHERAL SENSORY NEUROPATHY [None]
  - PULMONARY OEDEMA [None]
  - PULSE ABSENT [None]
  - WEIGHT DECREASED [None]
